FAERS Safety Report 8921004 (Version 1)
Quarter: 2012Q4

REPORT INFORMATION
  Report Type: 
  Country: ES (occurrence: ES)
  Receive Date: 20121121
  Receipt Date: 20121121
  Transmission Date: 20130627
  Serious: Yes (Life-Threatening, Hospitalization)
  Sender: FDA-Public Use
  Company Number: ES-ELI_LILLY_AND_COMPANY-ES201211003167

PATIENT
  Age: 81 Year
  Sex: Female

DRUGS (7)
  1. ZYPREXA [Suspect]
     Indication: SCHIZOPHRENIA
     Dosage: 10 mg, bid
     Route: 048
  2. QUETIAPINE [Concomitant]
     Indication: SCHIZOPHRENIA
     Dosage: 1425 mg, unknown
     Route: 048
  3. DOGMATIL [Concomitant]
     Indication: SCHIZOPHRENIA
     Dosage: 100 mg, unknown
     Route: 048
     Dates: start: 201203
  4. SINOGAN [Concomitant]
     Dosage: 24 Gtt, unknown
     Route: 048
     Dates: start: 201203
  5. INDAPAMIDE [Concomitant]
     Indication: EXTRAPYRAMIDAL DISORDER
     Dosage: 2.5 mg, unknown
  6. BENZODIAZEPINE DERIVATIVES [Concomitant]
     Indication: EXTRAPYRAMIDAL DISORDER
     Dosage: 1 DF, unknown
  7. AKINETON                                /AUS/ [Concomitant]
     Indication: EXTRAPYRAMIDAL DISORDER
     Dosage: 1 DF, unknown

REACTIONS (1)
  - Inappropriate antidiuretic hormone secretion [Unknown]
